FAERS Safety Report 6895136-X (Version None)
Quarter: 2010Q3

REPORT INFORMATION
  Report Type: 
  Country: None (occurrence: None)
  Receive Date: 20100802
  Receipt Date: 20100722
  Transmission Date: 20110219
  Serious: Yes (Other)
  Sender: FDA-Public Use
  Company Number: CA-JNJFOC-20100707755

PATIENT
  Sex: Female

DRUGS (5)
  1. SIMPONI [Suspect]
     Indication: RHEUMATOID ARTHRITIS
     Route: 058
  2. SIMPONI [Suspect]
     Route: 058
  3. CANDESARTAN [Concomitant]
     Route: 048
  4. NORVASC [Concomitant]
     Route: 048
  5. ARAVA [Concomitant]
     Route: 048

REACTIONS (4)
  - GINGIVAL OPERATION [None]
  - HEADACHE [None]
  - PRURITUS [None]
  - RASH [None]
